FAERS Safety Report 13105504 (Version 1)
Quarter: 2017Q1

REPORT INFORMATION
  Report Type: Spontaneous
  Country: GB (occurrence: GB)
  Receive Date: 20170111
  Receipt Date: 20170111
  Transmission Date: 20170428
  Serious: Yes (Life-Threatening, Hospitalization)
  Sender: FDA-Public Use
  Company Number: GB-PFIZER INC-3142698

PATIENT
  Age: 72 Year
  Sex: Male

DRUGS (16)
  1. DOXYCYCLINE. [Concomitant]
     Active Substance: DOXYCYCLINE
     Indication: PRODUCT USED FOR UNKNOWN INDICATION
     Dosage: TWO TO BE TAKEN ON THE FIRST DAY THEN ONE TO BE TAKEN EACH DAY
     Dates: start: 20151012
  2. SIMVASTATIN. [Concomitant]
     Active Substance: SIMVASTATIN
     Indication: PRODUCT USED FOR UNKNOWN INDICATION
     Dosage: 40 MG, AT NIGHT, FREQ: 1 DAY; INTERVAL: 1
  3. SENNA /00142201/ [Concomitant]
     Active Substance: SENNA LEAF
     Indication: CONSTIPATION
     Dosage: 7.5 MG, 1 OR 2 AT NIGHT, FREQ: AS NECESSARY
  4. OXYCONTIN [Concomitant]
     Active Substance: OXYCODONE HYDROCHLORIDE
     Indication: PRODUCT USED FOR UNKNOWN INDICATION
     Dosage: 10 MG, 10740.8333 MG, FREQ: 2 DAY; INTERVAL: 1
     Dates: start: 20140620
  5. SALINE /00075401/ [Concomitant]
     Active Substance: SODIUM CHLORIDE
     Indication: PRODUCT USED FOR UNKNOWN INDICATION
     Dosage: 2.5 ML, FREQ: AS NECESSARY
  6. ACLIDINIUM BROMIDE [Concomitant]
     Active Substance: ACLIDINIUM BROMIDE
     Indication: PRODUCT USED FOR UNKNOWN INDICATION
     Dosage: 1 DF, 375 MICROGRAMS/DOSE, FREQ: 2 DAY; INTERVAL: 1
     Route: 055
  7. LANSOPRAZOLE. [Concomitant]
     Active Substance: LANSOPRAZOLE
     Indication: PRODUCT USED FOR UNKNOWN INDICATION
     Dosage: 30 MG, FREQ: 1 DAY; INTERVAL: 1
  8. NINTEDANIB [Suspect]
     Active Substance: NINTEDANIB
     Indication: LUNG ADENOCARCINOMA
     Dosage: 200 MG, CUMULATIVE DOSE: 3200 MG; INTENDED FOR 20 DAY COURSE, FREQ: 2 DAY; INTERVAL: 1
     Route: 048
     Dates: start: 20151201, end: 20151209
  9. DEPO-MEDRONE [Concomitant]
     Active Substance: METHYLPREDNISOLONE
     Indication: PRODUCT USED FOR UNKNOWN INDICATION
     Dosage: 2 ML, INJECTION INTO RIGHT KNEE, FREQ: TOTAL
     Dates: start: 20151012, end: 20151012
  10. SIMPLE LINCTUS [Concomitant]
     Active Substance: AMARANTH\CHLOROFORM\CITRIC ACID MONOHYDRATE\PIMPINELLA ANISUM WHOLE
     Indication: PRODUCT USED FOR UNKNOWN INDICATION
     Dosage: 5 ML, 645 ML. SUGAR FREE, FREQ: 3 DAY; INTERVAL: 1
     Dates: start: 20151027
  11. DOCETAXEL. [Suspect]
     Active Substance: DOCETAXEL
     Indication: LUNG ADENOCARCINOMA
     Dosage: 75 MG/M2, INTENDED FOR 20 DAY COURSE, FREQ: CYCLICAL
     Dates: start: 20151201, end: 20151209
  12. OXYNORM [Concomitant]
     Active Substance: OXYCODONE HYDROCHLORIDE
     Indication: PAIN
     Dosage: 5 MG, FREQ: AS NECESSARY
     Dates: start: 20141121
  13. VENTOLIN [Concomitant]
     Active Substance: ALBUTEROL SULFATE
     Indication: PRODUCT USED FOR UNKNOWN INDICATION
     Dosage: 200 UG, 200 MICROGRAMS/DOSE ACUHALER. ONE DOSE UP TO FOUR TIMES A DAY ALSO USES A EASYHALER
     Route: 055
  14. DEXAMETHASONE. [Concomitant]
     Active Substance: DEXAMETHASONE
     Indication: CHEMOTHERAPY
     Dosage: 8 MG, PRE CHEMOTHERAPY, FREQ: 2 DAY; INTERVAL: 1
  15. PARACETAMOL [Concomitant]
     Active Substance: ACETAMINOPHEN
     Indication: PRODUCT USED FOR UNKNOWN INDICATION
     Dosage: 500 MG, 1-2, 4 TIMES A DAY, FREQ: AS NECESSARY
  16. FOSTAIR [Concomitant]
     Active Substance: BECLOMETHASONE\FORMOTEROL
     Indication: PRODUCT USED FOR UNKNOWN INDICATION
     Dosage: 2 DF, PUFFS.100 MICROGRAMS/DOSE/6 MICROGRAMS/DOSE, FREQ: 2 DAY; INERVAL: 1
     Route: 055

REACTIONS (9)
  - Pleural effusion [Unknown]
  - Lethargy [Unknown]
  - Neutrophil count decreased [Recovering/Resolving]
  - Hiccups [Unknown]
  - Mouth ulceration [Recovering/Resolving]
  - Neutropenic sepsis [Recovered/Resolved]
  - Diarrhoea [Recovered/Resolved]
  - Lung consolidation [Unknown]
  - Malaise [Unknown]

NARRATIVE: CASE EVENT DATE: 20151209
